FAERS Safety Report 20763148 (Version 3)
Quarter: 2022Q2

REPORT INFORMATION
  Report Type: Spontaneous
  Country: US (occurrence: US)
  Receive Date: 20220428
  Receipt Date: 20220629
  Transmission Date: 20220720
  Serious: No
  Sender: FDA-Public Use
  Company Number: US-PFIZER INC-202200569156

PATIENT
  Age: 46 Year
  Sex: Female

DRUGS (1)
  1. IBRANCE [Suspect]
     Active Substance: PALBOCICLIB
     Indication: Breast cancer female
     Dosage: UNK
     Dates: start: 20220211

REACTIONS (13)
  - Dry mouth [Unknown]
  - Oral discomfort [Unknown]
  - Nasal dryness [Unknown]
  - Dry skin [Unknown]
  - Epistaxis [Unknown]
  - Fatigue [Unknown]
  - Alopecia [Unknown]
  - Red blood cell count decreased [Unknown]
  - Nerve injury [Unknown]
  - Hypoaesthesia [Unknown]
  - Paraesthesia [Unknown]
  - Pain [Unknown]
  - Burning sensation [Unknown]
